FAERS Safety Report 8373135-9 (Version None)
Quarter: 2012Q2

REPORT INFORMATION
  Report Type: 
  Country: None (occurrence: None)
  Receive Date: 20120521
  Receipt Date: 20120514
  Transmission Date: 20120825
  Serious: No
  Sender: FDA-Public Use
  Company Number: US-PFIZER INC-2012097757

PATIENT
  Sex: Male
  Weight: 120 kg

DRUGS (6)
  1. VIAGRA [Suspect]
     Indication: ERECTILE DYSFUNCTION
     Dosage: 100 MG, AS NEEDED
     Route: 048
     Dates: start: 20120201
  2. KLONOPIN [Concomitant]
     Dosage: UNK
  3. VIAGRA [Suspect]
     Dosage: 100 MG, 1X/DAY
     Route: 048
     Dates: start: 20111111, end: 20111116
  4. HYDROCHLOROTHIAZIDE [Concomitant]
     Indication: HYPERTENSION
     Dosage: UNK
  5. METOPROLOL [Concomitant]
     Indication: HYPERTENSION
     Dosage: UNK
  6. HYDROCODONE [Concomitant]
     Dosage: 325 MG, UNK

REACTIONS (1)
  - DRUG INEFFECTIVE [None]
